FAERS Safety Report 9405710 (Version 23)
Quarter: 2014Q4

REPORT INFORMATION
  Report Type: Report from Study
  Country: PH (occurrence: PH)
  Receive Date: 20130717
  Receipt Date: 20141003
  Transmission Date: 20150529
  Serious: Yes (Disabling)
  Sender: FDA-Public Use
  Company Number: PH-009507513-1306PHL008430

PATIENT
  Age: 27 Year
  Sex: Female
  Weight: 63.6 kg

DRUGS (16)
  1. BOCEPREVIR [Suspect]
     Active Substance: BOCEPREVIR
     Dosage: 4 CAPSULES, QPM, EVENING
     Route: 048
     Dates: start: 20130524, end: 20130614
  2. ALVEDON [Concomitant]
     Active Substance: ACETAMINOPHEN
     Indication: HEADACHE
  3. BOCEPREVIR [Suspect]
     Active Substance: BOCEPREVIR
     Dosage: 4 CAPSULES, QPM, EVENING
     Route: 048
     Dates: start: 20130618, end: 20130709
  4. BOCEPREVIR [Suspect]
     Active Substance: BOCEPREVIR
     Dosage: 4 CAPSULES, QAM, MORNING
     Route: 048
     Dates: start: 20130525, end: 20130709
  5. RIBAVIRIN. [Suspect]
     Active Substance: RIBAVIRIN
     Indication: CHRONIC HEPATITIS C
     Dosage: 2 CAPSULES, QAM
     Route: 048
     Dates: start: 20130412, end: 20130625
  6. RIBAVIRIN. [Suspect]
     Active Substance: RIBAVIRIN
     Dosage: 2 CAPSULES, ONCE
     Route: 048
     Dates: start: 20130710, end: 20130710
  7. PEGINTERFERON ALFA-2A [Suspect]
     Active Substance: PEGINTERFERON ALFA-2A
     Dosage: 135 MCG, ONCE
     Route: 058
     Dates: start: 20130705, end: 20130705
  8. BOCEPREVIR [Suspect]
     Active Substance: BOCEPREVIR
     Dosage: 4 CAPSULES, QPM, EVENING
     Route: 048
     Dates: start: 20130616, end: 20130616
  9. PEGINTERFERON ALFA-2A [Suspect]
     Active Substance: PEGINTERFERON ALFA-2A
     Indication: CHRONIC HEPATITIS C
     Dosage: 180 MICROGRAM, QW
     Route: 058
     Dates: start: 20130412, end: 20130628
  10. RIBAVIRIN. [Suspect]
     Active Substance: RIBAVIRIN
     Dosage: 3 CAPSULES, QPM
     Route: 048
     Dates: start: 20130412, end: 20130625
  11. RIBAVIRIN. [Suspect]
     Active Substance: RIBAVIRIN
     Dosage: 1 CAPSULE, QAM
     Route: 048
     Dates: start: 20130626, end: 20130709
  12. RIBAVIRIN. [Suspect]
     Active Substance: RIBAVIRIN
     Dosage: 2 CAPSULE, QPM
     Route: 048
     Dates: start: 20130626, end: 20130709
  13. ALVEDON [Concomitant]
     Active Substance: ACETAMINOPHEN
     Indication: MALAISE
     Dosage: TOTAL DAILY DOSE: 500 MICROGRAM, PRN
     Route: 031
     Dates: start: 20130514, end: 20130715
  14. BOCEPREVIR [Suspect]
     Active Substance: BOCEPREVIR
     Indication: CHRONIC HEPATITIS C
     Dosage: 4 CAPSULES, ONCE
     Route: 048
     Dates: start: 20130524, end: 20130524
  15. BOCEPREVIR [Suspect]
     Active Substance: BOCEPREVIR
     Dosage: 4 CAPSULES, QD, AFTERNOON
     Route: 048
     Dates: start: 20130525, end: 20130709
  16. BOCEPREVIR [Suspect]
     Active Substance: BOCEPREVIR
     Dosage: 4 CAPSULES, ONCE
     Route: 048
     Dates: start: 20130710, end: 20130710

REACTIONS (3)
  - Autoimmune thyroiditis [Recovered/Resolved]
  - Cholecystitis [Recovered/Resolved]
  - Pancytopenia [Recovered/Resolved]

NARRATIVE: CASE EVENT DATE: 20130603
